FAERS Safety Report 10627034 (Version 5)
Quarter: 2015Q3

REPORT INFORMATION
  Report Type: Spontaneous
  Country: US (occurrence: US)
  Receive Date: 20141204
  Receipt Date: 20150820
  Transmission Date: 20151125
  Serious: Yes (Life-Threatening, Other)
  Sender: FDA-Public Use
  Company Number: US-BAYER-2014-175550

PATIENT
  Age: 23 Year
  Sex: Female
  Weight: 47 kg

DRUGS (6)
  1. AZITHROMYCIN [Concomitant]
     Active Substance: AZITHROMYCIN ANHYDROUS
  2. ORTHO TRI CYCLEN [Concomitant]
     Active Substance: ETHINYL ESTRADIOL\NORGESTIMATE
  3. AYGESTIN [Concomitant]
     Active Substance: NORETHINDRONE ACETATE
  4. METRONIDAZOLE. [Concomitant]
     Active Substance: METRONIDAZOLE
  5. TRICYCLEN [Concomitant]
     Active Substance: ETHINYL ESTRADIOL\NORGESTIMATE
  6. MIRENA [Suspect]
     Active Substance: LEVONORGESTREL
     Indication: CONTRACEPTION
     Dosage: 20 MCG/24HR, CONT
     Route: 015
     Dates: start: 20081021, end: 20101223

REACTIONS (19)
  - Vaginal haemorrhage [None]
  - Anxiety [None]
  - General physical health deterioration [Recovered/Resolved]
  - Emotional distress [None]
  - Pelvic adhesions [None]
  - Pain [Recovered/Resolved]
  - Abdominal pain [Recovered/Resolved]
  - Injury [Recovered/Resolved]
  - Abdominal pain upper [Recovered/Resolved]
  - Infection [None]
  - Device dislocation [Recovered/Resolved]
  - Genital haemorrhage [None]
  - Device dislocation [Recovered/Resolved]
  - Anhedonia [None]
  - Depression [None]
  - Uterine pain [Recovered/Resolved]
  - Scar [None]
  - Anaemia [None]
  - Blood iron decreased [None]

NARRATIVE: CASE EVENT DATE: 200810
